FAERS Safety Report 22099788 (Version 2)
Quarter: 2023Q2

REPORT INFORMATION
  Report Type: Spontaneous
  Country: US (occurrence: US)
  Receive Date: 20230315
  Receipt Date: 20230407
  Transmission Date: 20230722
  Serious: No
  Sender: FDA-Public Use
  Company Number: US-PFIZER INC-PV202300027949

PATIENT
  Age: 58 Year
  Sex: Female

DRUGS (2)
  1. CIBINQO [Suspect]
     Active Substance: ABROCITINIB
     Indication: Dermatitis atopic
     Dosage: 100 MG, DAILY
     Route: 048
     Dates: start: 20230207
  2. CIBINQO [Suspect]
     Active Substance: ABROCITINIB
     Dosage: UNK, 2X/DAY

REACTIONS (2)
  - Blood cholesterol increased [Unknown]
  - Off label use [Unknown]
